FAERS Safety Report 12358073 (Version 2)
Quarter: 2024Q3

REPORT INFORMATION
  Report Type: Report from Study
  Country: US (occurrence: US)
  Receive Date: 20160512
  Receipt Date: 20240807
  Transmission Date: 20241017
  Serious: Yes (Hospitalization, Other)
  Sender: AMGEN
  Company Number: US-AMGEN-USASL2016058866

PATIENT
  Age: 61 Year
  Sex: Male

DRUGS (1)
  1. ENBREL [Suspect]
     Active Substance: BENZYL ALCOHOL\ETANERCEPT
     Indication: Rheumatoid arthritis
     Dosage: 50 MILLIGRAM
     Route: 065

REACTIONS (6)
  - Infected skin ulcer [Unknown]
  - Osteomyelitis [Unknown]
  - Peroneal nerve palsy [Unknown]
  - Angina pectoris [Unknown]
  - Decubitus ulcer [Unknown]
  - Rheumatoid arthritis [Unknown]
